FAERS Safety Report 7031312-3 (Version None)
Quarter: 2010Q4

REPORT INFORMATION
  Report Type: 
  Country: None (occurrence: None)
  Receive Date: 20101006
  Receipt Date: 20100929
  Transmission Date: 20110411
  Serious: Yes (Other)
  Sender: FDA-Public Use
  Company Number: US-AMGEN-KDL437071

PATIENT
  Sex: Male
  Weight: 23.7 kg

DRUGS (7)
  1. NPLATE [Suspect]
     Indication: IDIOPATHIC THROMBOCYTOPENIC PURPURA
     Route: 058
     Dates: start: 20081219
  2. BACTRIM [Suspect]
     Dates: start: 20060201, end: 20100124
  3. CORTICOSTEROIDS [Concomitant]
     Dates: start: 20040721
  4. AZATHIOPRINE [Concomitant]
     Dates: start: 20080404
  5. VINCRISTINE [Concomitant]
  6. IMMU-G [Concomitant]
     Route: 042
     Dates: start: 20040721
  7. NEUPOGEN [Concomitant]
     Indication: NEUTROPENIA
     Route: 058
     Dates: start: 20091118, end: 20100903

REACTIONS (2)
  - RASH [None]
  - URTICARIA [None]
